FAERS Safety Report 6691345-3 (Version None)
Quarter: 2010Q2

REPORT INFORMATION
  Report Type: 
  Country: None (occurrence: None)
  Receive Date: 20100416
  Receipt Date: 20100401
  Transmission Date: 20101027
  Serious: Yes (Hospitalization)
  Sender: FDA-Public Use
  Company Number: 2010001180

PATIENT
  Age: 22 Year
  Sex: Male

DRUGS (4)
  1. ERLOTINIB (ERLOTINIB) (TABLET) (ERLOTINIB) [Suspect]
     Indication: NON-SMALL CELL LUNG CANCER
     Dosage: ORAL
     Route: 048
     Dates: start: 20100317
  2. GEMCITABINE [Suspect]
     Indication: NON-SMALL CELL LUNG CANCER
     Dosage: 2300 MG, 2XPER 4 WEEKS), INTRAVENOUS
     Route: 042
     Dates: start: 20100303
  3. CARBOPLATIN [Suspect]
     Indication: NON-SMALL CELL LUNG CANCER
     Dosage: 830 MG, 1X PER 4 WEEKS), INTRAVENOUS
     Route: 042
  4. TELMISARTAN [Concomitant]

REACTIONS (1)
  - ANAEMIA [None]
